FAERS Safety Report 4649997-5 (Version None)
Quarter: 2005Q2

REPORT INFORMATION
  Report Type: 
  Country: None (occurrence: None)
  Receive Date: 20050428
  Receipt Date: 20050415
  Transmission Date: 20051028
  Serious: Yes (Hospitalization)
  Sender: FDA-Public Use
  Company Number: GBR-2005-0001654

PATIENT
  Age: 78 Year
  Sex: Female

DRUGS (4)
  1. DIHYDROCODEINE BITARTRATE INJ [Suspect]
     Indication: GOUT
     Dosage: 30 MG, DAILY, ORAL
     Route: 048
     Dates: start: 20050323, end: 20050401
  2. CARDURA [Concomitant]
  3. QUINAPRIL HCL [Concomitant]
  4. ETORICOXIB [Concomitant]

REACTIONS (1)
  - SWELLING FACE [None]
